FAERS Safety Report 14849847 (Version 2)
Quarter: 2019Q3

REPORT INFORMATION
  Report Type: Spontaneous
  Country: US (occurrence: US)
  Receive Date: 20180504
  Receipt Date: 20190718
  Transmission Date: 20191004
  Serious: Yes (Hospitalization)
  Sender: FDA-Public Use
  Company Number: US-ACTELION-A-US2018-171321

PATIENT
  Sex: Female

DRUGS (1)
  1. TRACLEER [Suspect]
     Active Substance: BOSENTAN
     Indication: PULMONARY HYPERTENSION
     Dosage: 16 MG, BID
     Route: 048
     Dates: start: 20180103, end: 20190708

REACTIONS (4)
  - Respiratory failure [Recovered/Resolved]
  - Rhinovirus infection [Recovered/Resolved]
  - Bronchiolitis [Recovered/Resolved]
  - Pneumonia [Recovered/Resolved]
